FAERS Safety Report 5705278-X (Version None)
Quarter: 2008Q2

REPORT INFORMATION
  Report Type: 
  Country: None (occurrence: None)
  Receive Date: 20080410
  Receipt Date: 20080325
  Transmission Date: 20081010
  Serious: Yes (Hospitalization)
  Sender: FDA-Public Use
  Company Number: 8031242

PATIENT
  Age: 31 Month
  Sex: Male
  Weight: 14.5 kg

DRUGS (1)
  1. KEPPRA [Suspect]
     Indication: PARTIAL SEIZURES
     Dosage: 20 MG 2/D PO
     Route: 048
     Dates: start: 20080101, end: 20080101

REACTIONS (4)
  - ATONIC SEIZURES [None]
  - DYSKINESIA [None]
  - HYPOTONIA [None]
  - SALIVARY HYPERSECRETION [None]
